FAERS Safety Report 14181760 (Version 1)
Quarter: 2017Q4

REPORT INFORMATION
  Report Type: Spontaneous
  Country: US (occurrence: US)
  Receive Date: 20171111
  Receipt Date: 20171111
  Transmission Date: 20180321
  Serious: Yes (Life-Threatening, Disabling, Other)
  Sender: FDA-Public Use
  Company Number: None

PATIENT
  Age: 51 Year
  Sex: Female

DRUGS (5)
  1. VITAMIN A [Concomitant]
     Active Substance: VITAMIN A
  2. PAN X GLITITHIONE [Concomitant]
  3. CIPRO [Suspect]
     Active Substance: CIPROFLOXACIN HYDROCHLORIDE
     Indication: INFECTION
     Route: 048
  4. VITAMIN C [Concomitant]
     Active Substance: ASCORBIC ACID
  5. VITAMIN B [Concomitant]
     Active Substance: VITAMIN B

REACTIONS (10)
  - Abnormal dreams [None]
  - Fatigue [None]
  - Nervous system disorder [None]
  - Nervousness [None]
  - Tendon pain [None]
  - Hallucination [None]
  - Dyspnoea [None]
  - Anxiety [None]
  - Arthralgia [None]
  - Pain [None]

NARRATIVE: CASE EVENT DATE: 20160423
